FAERS Safety Report 4482087-3 (Version None)
Quarter: 2004Q3

REPORT INFORMATION
  Report Type: 
  Country: None (occurrence: None)
  Receive Date: 20040921
  Receipt Date: 20031002
  Transmission Date: 20050211
  Serious: Yes (Hospitalization)
  Sender: FDA-Public Use
  Company Number: 163-20785-03070105(1)

PATIENT
  Age: 56 Year
  Sex: Female

DRUGS (12)
  1. THALOMID [Suspect]
     Indication: MULTIPLE MYELOMA
     Dosage: SEE IMAGE
     Route: 048
     Dates: start: 20020804, end: 20020811
  2. THALOMID [Suspect]
     Indication: MULTIPLE MYELOMA
     Dosage: SEE IMAGE
     Route: 048
     Dates: start: 20020825, end: 20021225
  3. THALOMID [Suspect]
     Indication: MULTIPLE MYELOMA
     Dosage: SEE IMAGE
     Route: 048
     Dates: start: 20030610, end: 20030707
  4. MELPHALAN (MELPHALAN) [Suspect]
     Indication: MULTIPLE MYELOMA
     Dosage: SEE IMAGE
     Route: 042
     Dates: start: 20030521
  5. MELPHALAN (MELPHALAN) [Suspect]
     Indication: MULTIPLE MYELOMA
     Dosage: SEE IMAGE
     Route: 042
     Dates: start: 20030824
  6. DEXAMETHASONE [Concomitant]
  7. CISPLATIN [Concomitant]
  8. ETOPOSIDE [Concomitant]
  9. CYCLOPHOSPHAMIDE [Concomitant]
  10. ADRIAMYCIN PFS [Concomitant]
  11. VINCRISTINE [Concomitant]
  12. PERIPHERAL BLOOD STEM CELL REINFUSION [Concomitant]

REACTIONS (6)
  - ABDOMINAL PAIN [None]
  - DIARRHOEA [None]
  - DIZZINESS [None]
  - ENTEROCOCCAL BACTERAEMIA [None]
  - HYPOTENSION [None]
  - PANCYTOPENIA [None]
